FAERS Safety Report 17100669 (Version 2)
Quarter: 2019Q4

REPORT INFORMATION
  Report Type: Report from Study
  Country: US (occurrence: US)
  Receive Date: 20191202
  Receipt Date: 20191204
  Transmission Date: 20200122
  Serious: No
  Sender: FDA-Public Use
  Company Number: US-SA-2019SA326779

PATIENT
  Age: 63 Year
  Sex: Male

DRUGS (20)
  1. DUPILUMAB [Suspect]
     Active Substance: DUPILUMAB
     Indication: ASTHMA
     Dosage: 600 MG, 1X
     Route: 058
  2. AMLODIPINE BESILATE [Concomitant]
     Active Substance: AMLODIPINE BESYLATE
  3. CARVEDILOL. [Concomitant]
     Active Substance: CARVEDILOL
  4. CLOPIDOGREL BISULFATE. [Concomitant]
     Active Substance: CLOPIDOGREL BISULFATE
  5. OXYCODONE HYDROCHLORIDE. [Concomitant]
     Active Substance: OXYCODONE HYDROCHLORIDE
  6. OMEPRAZOLE. [Concomitant]
     Active Substance: OMEPRAZOLE
  7. LISINOPRIL. [Concomitant]
     Active Substance: LISINOPRIL
  8. VENTOLIN HFA [Concomitant]
     Active Substance: ALBUTEROL SULFATE
  9. DUPILUMAB [Suspect]
     Active Substance: DUPILUMAB
     Dosage: 300 MG, QOW
     Route: 058
  10. FUROSEMIDE. [Concomitant]
     Active Substance: FUROSEMIDE
  11. LANTUS [Concomitant]
     Active Substance: INSULIN GLARGINE
  12. XOLAIR [Concomitant]
     Active Substance: OMALIZUMAB
  13. DOXYCYCLINE. [Concomitant]
     Active Substance: DOXYCYCLINE
  14. METFORMIN HYDROCHLORIDE. [Concomitant]
     Active Substance: METFORMIN HYDROCHLORIDE
  15. MONTELUKAST SODIUM. [Concomitant]
     Active Substance: MONTELUKAST SODIUM
  16. PREDNISONE. [Concomitant]
     Active Substance: PREDNISONE
  17. SPIRIVA [Concomitant]
     Active Substance: TIOTROPIUM BROMIDE MONOHYDRATE
  18. EZETIMIBE. [Concomitant]
     Active Substance: EZETIMIBE
  19. PREGABALIN. [Concomitant]
     Active Substance: PREGABALIN
  20. TAMSULOSIN HCL [Concomitant]
     Active Substance: TAMSULOSIN HYDROCHLORIDE

REACTIONS (2)
  - Product use issue [Unknown]
  - Influenza [Not Recovered/Not Resolved]

NARRATIVE: CASE EVENT DATE: 201911
